FAERS Safety Report 17546771 (Version 1)
Quarter: 2020Q1

REPORT INFORMATION
  Report Type: Spontaneous
  Country: US (occurrence: US)
  Receive Date: 20200316
  Receipt Date: 20200316
  Transmission Date: 20200409
  Serious: No
  Sender: FDA-Public Use
  Company Number: US-BAYER-2020-043264

PATIENT

DRUGS (1)
  1. AVELOX [Suspect]
     Active Substance: MOXIFLOXACIN HYDROCHLORIDE
     Indication: LOCALISED INFECTION
     Dosage: 400 MG

REACTIONS (5)
  - Emphysema [None]
  - Nasopharyngitis [None]
  - Incorrect product administration duration [None]
  - Diarrhoea [None]
  - Cough [None]
